FAERS Safety Report 7256237-X (Version None)
Quarter: 2011Q1

REPORT INFORMATION
  Report Type: 
  Country: None (occurrence: None)
  Receive Date: 20110129
  Receipt Date: 20100502
  Transmission Date: 20110831
  Serious: No
  Sender: FDA-Public Use
  Company Number: US-ABBOTT-10P-163-0628076-00

PATIENT
  Sex: Female
  Weight: 59.928 kg

DRUGS (3)
  1. HUMIRA [Suspect]
     Indication: CROHN'S DISEASE
     Dates: start: 20070604, end: 20100110
  2. CIPRO [Suspect]
     Dates: start: 20091201
  3. CIPRO [Suspect]
     Indication: ABSCESS

REACTIONS (4)
  - PERIPHERAL COLDNESS [None]
  - MUSCLE SPASMS [None]
  - PARAESTHESIA [None]
  - PARAESTHESIA ORAL [None]
